FAERS Safety Report 9885306 (Version 1)
Quarter: 2014Q1

REPORT INFORMATION
  Report Type: Spontaneous
  Country: US (occurrence: US)
  Receive Date: 20140210
  Receipt Date: 20140210
  Transmission Date: 20141002
  Serious: No
  Sender: FDA-Public Use
  Company Number: US-PFIZER INC-2014035772

PATIENT
  Sex: 0

DRUGS (4)
  1. NEURONTIN [Suspect]
     Indication: HEADACHE
     Dosage: 300 MG, 3X/DAY
  2. HALDOL [Concomitant]
     Dosage: 4 MG, 3X/DAY
  3. LITHIUM [Concomitant]
     Indication: BIPOLAR DISORDER
     Dosage: UNK
  4. LAMICTAL [Concomitant]
     Dosage: UNK

REACTIONS (6)
  - Off label use [Unknown]
  - Akathisia [Unknown]
  - Dysarthria [Unknown]
  - Dyskinesia [Unknown]
  - Joint stiffness [Unknown]
  - Salivary hypersecretion [Unknown]
